FAERS Safety Report 12684406 (Version 15)
Quarter: 2020Q4

REPORT INFORMATION
  Report Type: Report from Study
  Country: US (occurrence: US)
  Receive Date: 20160825
  Receipt Date: 20201230
  Transmission Date: 20210113
  Serious: Yes (Hospitalization, Other)
  Sender: FDA-Public Use
  Company Number: US-AEGERION PHARMACEUTICAL INC.-AEGR002387

PATIENT
  Age: 14 Year
  Sex: Female
  Weight: 56.3 kg

DRUGS (29)
  1. METRELEPTIN [Suspect]
     Active Substance: METRELEPTIN
     Dosage: 3.75 MG, QD
     Route: 058
     Dates: start: 20160314, end: 20160828
  2. METFORMIN [Concomitant]
     Active Substance: METFORMIN HYDROCHLORIDE
     Dosage: 500 MILLIGRAM, BID
     Route: 048
     Dates: start: 20201111
  3. NPH INSULIN [Concomitant]
     Active Substance: INSULIN BEEF
     Dosage: 500-600  IU, CONTINUOUS VIA PUMP
  4. LISINOPRIL. [Concomitant]
     Active Substance: LISINOPRIL
     Indication: RENAL DISORDER PROPHYLAXIS
     Dosage: 2.5 MG, QD
     Dates: start: 20190821
  5. BUSPAR [Concomitant]
     Active Substance: BUSPIRONE HYDROCHLORIDE
     Indication: ANXIETY
     Dosage: 2.5 MG, QD
     Route: 048
     Dates: start: 20190918
  6. INSULIN U-500 [Concomitant]
     Active Substance: INSULIN HUMAN
     Indication: DIABETES MELLITUS
     Dosage: UNK INTERNATIONAL UNIT
  7. GABAPENTIN. [Concomitant]
     Active Substance: GABAPENTIN
     Indication: NEUROPATHY PERIPHERAL
     Dosage: 300 MILLIGRAM, TID
     Route: 048
     Dates: start: 20190611
  8. METFORMIN [Concomitant]
     Active Substance: METFORMIN HYDROCHLORIDE
     Indication: DIABETES MELLITUS
     Dosage: 500 MG, BID
     Route: 048
     Dates: start: 20160720
  9. LANTUS [Concomitant]
     Active Substance: INSULIN GLARGINE
     Dosage: 60 INTERNATIONAL UNIT, BID
     Route: 058
     Dates: start: 20201027
  10. VITAMIN E                          /00110501/ [Concomitant]
     Active Substance: TOCOPHEROL
     Indication: SUPPLEMENTATION THERAPY
     Dosage: 400 MG, QD
     Route: 048
     Dates: start: 201812
  11. VITAMIN D3 [Concomitant]
     Active Substance: CHOLECALCIFEROL
     Indication: VITAMIN D DEFICIENCY
     Dosage: 1000 IU, QD
     Route: 048
  12. BUSPAR [Concomitant]
     Active Substance: BUSPIRONE HYDROCHLORIDE
     Dosage: 5 MILLIGRAM, QD
     Route: 048
     Dates: start: 20200303
  13. LANTUS [Concomitant]
     Active Substance: INSULIN GLARGINE
     Dosage: 65 IU, BID
     Route: 048
     Dates: start: 20190808
  14. METRELEPTIN [Suspect]
     Active Substance: METRELEPTIN
     Dosage: 3.75 MG, QD
     Route: 058
     Dates: start: 20150314, end: 20160201
  15. INSULIN U-500 [Concomitant]
     Active Substance: INSULIN HUMAN
     Dosage: 250-500 CONTINUOS PUMP
     Dates: start: 20201113
  16. METRELEPTIN [Suspect]
     Active Substance: METRELEPTIN
     Dosage: 2.5 MG, QD
     Route: 058
     Dates: start: 20160829, end: 20160831
  17. NPH INSULIN [Concomitant]
     Active Substance: INSULIN BEEF
     Indication: DIABETES MELLITUS
     Dosage: 2 IU, CONTINUOUS VIA PUMP
     Dates: start: 20171108
  18. NPH INSULIN [Concomitant]
     Active Substance: INSULIN BEEF
     Dosage: 6 IU, CONTINUOUS VIA PUMP
     Dates: start: 20171108
  19. TYLENOL [Concomitant]
     Active Substance: ACETAMINOPHEN
     Indication: PAIN
     Dosage: 325 MG, PRN
     Route: 048
     Dates: start: 201904
  20. COENZYME Q10 [Concomitant]
     Active Substance: DIETARY SUPPLEMENT\UBIDECARENONE
     Indication: SUPPLEMENTATION THERAPY
     Dosage: 2 DF, QD
     Route: 048
     Dates: start: 201809
  21. METRELEPTIN [Suspect]
     Active Substance: METRELEPTIN
     Dosage: 3.75 MG, QD
     Route: 058
     Dates: start: 20160901, end: 20160905
  22. CALCIUM CARBONATE. [Concomitant]
     Active Substance: CALCIUM CARBONATE
     Indication: SUPPLEMENTATION THERAPY
     Dosage: 500 MG, TID
     Route: 048
     Dates: start: 201811
  23. METRELEPTIN [Suspect]
     Active Substance: METRELEPTIN
     Indication: LIPODYSTROPHY ACQUIRED
     Dosage: 2.5 MG, QD
     Route: 058
     Dates: start: 20140821, end: 20141126
  24. METRELEPTIN [Suspect]
     Active Substance: METRELEPTIN
     Dosage: 3 MG, QD
     Route: 058
     Dates: start: 20141127, end: 20150313
  25. METRELEPTIN [Suspect]
     Active Substance: METRELEPTIN
     Dosage: 3 MG, QD
     Route: 058
     Dates: start: 20160202, end: 20160313
  26. ERGOCALCIFEROL. [Concomitant]
     Active Substance: ERGOCALCIFEROL
     Indication: VITAMIN D DECREASED
     Dosage: 50000 IU, 1XWEEKLY
     Route: 048
     Dates: start: 20160722
  27. LANTUS [Concomitant]
     Active Substance: INSULIN GLARGINE
     Indication: DIABETES MELLITUS
     Dosage: 60 INTERNATIONAL UNIT, BID
     Route: 058
     Dates: start: 20170511
  28. ZOFRAN [Concomitant]
     Active Substance: ONDANSETRON HYDROCHLORIDE
     Indication: NAUSEA
     Dosage: 4 MILLIGRAM, PRN
     Route: 048
     Dates: start: 201808
  29. DIPHENHYDRAMINE HCL [Concomitant]
     Active Substance: DIPHENHYDRAMINE HYDROCHLORIDE
     Indication: HYPERSENSITIVITY
     Dosage: 25 MILLIGRAM, PRN
     Route: 048
     Dates: start: 20140813

REACTIONS (3)
  - Neutralising antibodies positive [Not Recovered/Not Resolved]
  - Hypertriglyceridaemia [Not Recovered/Not Resolved]
  - Type 1 diabetes mellitus [Not Recovered/Not Resolved]

NARRATIVE: CASE EVENT DATE: 20160129
